FAERS Safety Report 8159366-1 (Version None)
Quarter: 2012Q1

REPORT INFORMATION
  Report Type: 
  Country: None (occurrence: None)
  Receive Date: 20120223
  Receipt Date: 20120216
  Transmission Date: 20120608
  Serious: Yes (Hospitalization, Other)
  Sender: FDA-Public Use
  Company Number: US-VERTEX PHARMACEUTICALS INC.-AE-2012-002343

PATIENT
  Sex: Male

DRUGS (3)
  1. INCIVEK [Suspect]
     Indication: HEPATITIS C
     Dates: start: 20120131, end: 20120203
  2. PEGASYS [Concomitant]
     Indication: HEPATITIS C
     Dates: start: 20120131, end: 20120203
  3. RIBAVIRIN [Concomitant]
     Indication: HEPATITIS C
     Dates: start: 20120131, end: 20120203

REACTIONS (7)
  - TIC [None]
  - EPISTAXIS [None]
  - HYPERHIDROSIS [None]
  - NAUSEA [None]
  - HAEMATEMESIS [None]
  - HYPERKALAEMIA [None]
  - GRAND MAL CONVULSION [None]
